FAERS Safety Report 8463275-8 (Version None)
Quarter: 2012Q2

REPORT INFORMATION
  Report Type: 
  Country: None (occurrence: None)
  Receive Date: 20120625
  Receipt Date: 20120615
  Transmission Date: 20120825
  Serious: Yes (Hospitalization, Other)
  Sender: FDA-Public Use
  Company Number: US-ABBOTT-12P-163-0944120-00

PATIENT
  Sex: Female
  Weight: 62.198 kg

DRUGS (4)
  1. LOSARTAN POTASSIUM [Concomitant]
     Indication: PRODUCT USED FOR UNKNOWN INDICATION
  2. SYNTHROID [Suspect]
     Dates: start: 20100901
  3. BYSTOLIC [Concomitant]
     Indication: PRODUCT USED FOR UNKNOWN INDICATION
  4. SYNTHROID [Suspect]
     Indication: PRODUCT USED FOR UNKNOWN INDICATION
     Route: 048
     Dates: end: 20100901

REACTIONS (9)
  - PALPITATIONS [None]
  - PRODUCT QUALITY ISSUE [None]
  - CARDIAC FIBRILLATION [None]
  - MYOCARDIAL INFARCTION [None]
  - AMNESIA [None]
  - MIDDLE INSOMNIA [None]
  - EXTRASYSTOLES [None]
  - CHEST PAIN [None]
  - VENTRICULAR EXTRASYSTOLES [None]
